FAERS Safety Report 5934947-1 (Version None)
Quarter: 2008Q4

REPORT INFORMATION
  Report Type: 
  Country: None (occurrence: None)
  Receive Date: 20081028
  Receipt Date: 20081014
  Transmission Date: 20090506
  Serious: Yes (Hospitalization)
  Sender: FDA-Public Use
  Company Number: IMP_03918_2008

PATIENT
  Age: 39 Year
  Sex: Female

DRUGS (1)
  1. MINOCYCLINE HCL [Suspect]
     Indication: ACNE
     Dosage: (DF)

REACTIONS (12)
  - BODY TEMPERATURE INCREASED [None]
  - DYSPEPSIA [None]
  - DYSPNOEA [None]
  - FACE OEDEMA [None]
  - HAEMATURIA [None]
  - NO THERAPEUTIC RESPONSE [None]
  - OEDEMA PERIPHERAL [None]
  - OESOPHAGEAL PAIN [None]
  - SERUM SICKNESS [None]
  - TACHYCARDIA [None]
  - URTICARIA [None]
  - WHITE BLOOD CELL COUNT INCREASED [None]
